FAERS Safety Report 8054737-6 (Version None)
Quarter: 2012Q1

REPORT INFORMATION
  Report Type: 
  Country: None (occurrence: None)
  Receive Date: 20120111
  Receipt Date: 20111229
  Transmission Date: 20120608
  Serious: Yes (Hospitalization)
  Sender: FDA-Public Use
  Company Number: OMPQ-PR-1112L-2154

PATIENT

DRUGS (2)
  1. FUROSEMIDE [Suspect]
     Indication: OLIGURIA
     Dosage: MAX, 2.0 MG/KG, INTRAVENOUS
     Route: 042
  2. OMNIPAQUE 70 [Suspect]
     Indication: PRODUCT USED FOR UNKNOWN INDICATION
     Dosage: INTRA-ARTERIAL
     Route: 013

REACTIONS (1)
  - HYPOKALAEMIA [None]
